FAERS Safety Report 9112239 (Version 1)
Quarter: 2013Q1

REPORT INFORMATION
  Report Type: Spontaneous
  Country: US (occurrence: US)
  Receive Date: 20130219
  Receipt Date: 20130219
  Transmission Date: 20140127
  Serious: No
  Sender: FDA-Public Use
  Company Number: US-BRISTOL-MYERS SQUIBB COMPANY-17043324

PATIENT
  Sex: Male

DRUGS (2)
  1. ABATACEPT SUBQ INJECTION 125MG/ML [Suspect]
     Dosage: ORENCIA INJECTION
     Route: 058
  2. BACTRIM [Suspect]

REACTIONS (2)
  - Drug effect decreased [Unknown]
  - Rash [Unknown]
